FAERS Safety Report 6525711-3 (Version None)
Quarter: 2009Q4

REPORT INFORMATION
  Report Type: 
  Country: None (occurrence: None)
  Receive Date: 20091228
  Receipt Date: 20091218
  Transmission Date: 20100525
  Serious: Yes (Death, Other)
  Sender: FDA-Public Use
  Company Number: CLOF-1000724

PATIENT
  Age: 4 Year
  Sex: Male
  Weight: 16 kg

DRUGS (5)
  1. CLOLAR [Suspect]
     Indication: T-CELL LYMPHOMA REFRACTORY
     Dosage: 40 MG/M2, QDX5, INTRAVENOUS
     Route: 042
     Dates: start: 20090904, end: 20090909
  2. ETOPOSIDE [Suspect]
     Indication: T-CELL LYMPHOMA REFRACTORY
     Dosage: 100 MG/M2, QDX5, INTRAVENOUS
     Route: 042
     Dates: start: 20090904, end: 20090909
  3. CYCLOPHOSPHAMIDE [Suspect]
     Indication: T-CELL LYMPHOMA REFRACTORY
     Dosage: 400 MG/M2, QDX5, INTRAVENOUS
     Route: 042
     Dates: start: 20090904, end: 20090909
  4. CLOXACILLIN BENZATHINE [Concomitant]
  5. ZOFRAN [Concomitant]

REACTIONS (16)
  - ALANINE AMINOTRANSFERASE INCREASED [None]
  - CENTRAL NERVOUS SYSTEM LYMPHOMA [None]
  - CEREBRAL HAEMORRHAGE [None]
  - CEREBRAL ISCHAEMIA [None]
  - CONVULSION [None]
  - DISEASE PROGRESSION [None]
  - HAEMOGLOBIN DECREASED [None]
  - HEPATIC ENZYME INCREASED [None]
  - KLEBSIELLA SEPSIS [None]
  - NEUTROPENIA [None]
  - NEUTROPENIC COLITIS [None]
  - PNEUMATOSIS INTESTINALIS [None]
  - RESPIRATORY DISTRESS [None]
  - T-CELL LYMPHOMA [None]
  - VASOGENIC CEREBRAL OEDEMA [None]
  - WHITE BLOOD CELL COUNT DECREASED [None]
